FAERS Safety Report 22203928 (Version 1)
Quarter: 2023Q2

REPORT INFORMATION
  Report Type: Spontaneous
  Country: FR (occurrence: FR)
  Receive Date: 20230412
  Receipt Date: 20230412
  Transmission Date: 20230721
  Serious: Yes (Other)
  Sender: FDA-Public Use
  Company Number: FR-SANOFI-01468571

PATIENT
  Age: 11 Year
  Sex: Male
  Weight: 39 kg

DRUGS (8)
  1. CLOBAZAM [Suspect]
     Active Substance: CLOBAZAM
     Indication: Epilepsy
     Dosage: 5 MG
     Route: 065
     Dates: start: 20221212
  2. CLOBAZAM [Suspect]
     Active Substance: CLOBAZAM
     Dosage: 10 MG
     Route: 065
  3. CLOBAZAM [Suspect]
     Active Substance: CLOBAZAM
     Dosage: 5 MG
     Route: 065
     Dates: start: 202301, end: 20230106
  4. CLOBAZAM [Suspect]
     Active Substance: CLOBAZAM
     Dosage: 5 MG
     Route: 065
     Dates: start: 20230110
  5. LEVETIRACETAM [Suspect]
     Active Substance: LEVETIRACETAM
     Indication: Product used for unknown indication
     Dosage: UNK
     Route: 065
  6. FYCOMPA [Suspect]
     Active Substance: PERAMPANEL
     Indication: Epilepsy
     Dosage: UNK
     Route: 048
     Dates: start: 20221216
  7. KEPPRA [Concomitant]
     Active Substance: LEVETIRACETAM
     Indication: Epilepsy
     Dosage: UNK
     Route: 048
     Dates: start: 20220803
  8. MIDAZOLAM HYDROCHLORIDE [Concomitant]
     Active Substance: MIDAZOLAM HYDROCHLORIDE
     Indication: Product used for unknown indication
     Dosage: UNK
     Route: 048

REACTIONS (4)
  - Hallucination [Recovering/Resolving]
  - Nightmare [Recovering/Resolving]
  - Dizziness [Not Recovered/Not Resolved]
  - Drug ineffective [Unknown]
